FAERS Safety Report 4765502-7 (Version None)
Quarter: 2005Q3

REPORT INFORMATION
  Report Type: 
  Country: None (occurrence: None)
  Receive Date: 20050912
  Receipt Date: 20050901
  Transmission Date: 20060218
  Serious: Yes (Hospitalization)
  Sender: FDA-Public Use
  Company Number: US-JNJFOC-20050900375

PATIENT
  Sex: Female

DRUGS (26)
  1. INFLIXIMAB [Suspect]
     Indication: RHEUMATOID ARTHRITIS
     Route: 042
  2. ALPRAZOLAM [Concomitant]
  3. AMBIEN [Concomitant]
  4. BENADRYL [Concomitant]
  5. CALCIUM GLUCONATE [Concomitant]
  6. CLARITIN [Concomitant]
  7. CLONAZEPAM [Concomitant]
  8. CYCLOBENZAPRINE HCL [Concomitant]
  9. GLUCOSAMINE [Concomitant]
  10. LEVOXYL [Concomitant]
  11. MIACALCIN [Concomitant]
  12. PREVACID [Concomitant]
  13. TRAMADOL HCL [Concomitant]
  14. TRAMADOL HCL [Concomitant]
  15. TRAMADOL HCL [Concomitant]
  16. TRAMADOL HCL [Concomitant]
  17. TRAMADOL HCL [Concomitant]
  18. TRAMADOL HCL [Concomitant]
  19. ASPIRIN [Concomitant]
  20. ADVAIR DISKUS 100/50 [Concomitant]
  21. ADVAIR DISKUS 100/50 [Concomitant]
  22. ADVAIR DISKUS 100/50 [Concomitant]
  23. ADVAIR DISKUS 100/50 [Concomitant]
  24. ZOCOR [Concomitant]
  25. VITAMIN B-12 [Concomitant]
  26. ASCORBIC ACID [Concomitant]

REACTIONS (2)
  - FAECALOMA [None]
  - PYREXIA [None]
